FAERS Safety Report 8840802 (Version 2)
Quarter: 2013Q2

REPORT INFORMATION
  Report Type: Spontaneous
  Country: FR (occurrence: FR)
  Receive Date: 20121015
  Receipt Date: 20130610
  Transmission Date: 20140414
  Serious: Yes (Other)
  Sender: FDA-Public Use
  Company Number: FR-BRISTOL-MYERS SQUIBB COMPANY-17023524

PATIENT
  Age: 65 Year
  Sex: Female

DRUGS (6)
  1. ORENCIA [Suspect]
     Indication: RHEUMATOID ARTHRITIS
     Dosage: LAST INF-06JUL12:INT ON 2AU12 AND RESTARTED ON UNK
     Route: 042
     Dates: start: 201202
  2. AVLOCARDYL [Suspect]
     Indication: HYPERTENSION
     Route: 048
     Dates: start: 201204
  3. LERCAN [Concomitant]
     Indication: HYPERTENSION
  4. ALDACTONE [Concomitant]
     Indication: HYPERTENSION
  5. METHOTREXATE [Concomitant]
     Indication: RHEUMATOID ARTHRITIS
  6. CORTANCYL [Concomitant]
     Indication: RHEUMATOID ARTHRITIS
     Dates: end: 201207

REACTIONS (1)
  - Lichen planus [Not Recovered/Not Resolved]
